FAERS Safety Report 14949099 (Version 2)
Quarter: 2018Q4

REPORT INFORMATION
  Report Type: Spontaneous
  Country: FR (occurrence: FR)
  Receive Date: 20180529
  Receipt Date: 20181002
  Transmission Date: 20190204
  Serious: Yes (Other)
  Sender: FDA-Public Use
  Company Number: FR-PFIZER INC-2018214038

PATIENT
  Age: 77 Year
  Sex: Male
  Weight: 80 kg

DRUGS (1)
  1. SUTENT [Suspect]
     Active Substance: SUNITINIB MALATE
     Dosage: 50 MG, DAILY
     Route: 048
     Dates: start: 20171228, end: 20180111

REACTIONS (5)
  - Thrombotic microangiopathy [Recovered/Resolved]
  - Pyrexia [Unknown]
  - Acute kidney injury [Unknown]
  - Thrombocytopenia [Unknown]
  - General physical health deterioration [Unknown]

NARRATIVE: CASE EVENT DATE: 20180112
